FAERS Safety Report 9970491 (Version 1)
Quarter: 2014Q1

REPORT INFORMATION
  Report Type: Spontaneous
  Country: US (occurrence: None)
  Receive Date: 20140305
  Receipt Date: 20140305
  Transmission Date: 20141002
  Serious: Yes (Disabling)
  Sender: FDA-Public Use
  Company Number: None

PATIENT
  Age: 61 Year
  Sex: Male
  Weight: 120.2 kg

DRUGS (2)
  1. LYRICA [Suspect]
     Indication: NECK PAIN
     Dosage: 2 PILLS
     Route: 048
  2. LYRICA [Suspect]
     Indication: BACK PAIN
     Dosage: 2 PILLS
     Route: 048

REACTIONS (4)
  - Abnormal sensation in eye [None]
  - Dry eye [None]
  - Asthenopia [None]
  - Feeling abnormal [None]
